FAERS Safety Report 7795893-4 (Version None)
Quarter: 2011Q4

REPORT INFORMATION
  Report Type: 
  Country: None (occurrence: None)
  Receive Date: 20111004
  Receipt Date: 20110928
  Transmission Date: 20120403
  Serious: No
  Sender: FDA-Public Use
  Company Number: US-BAYER-2011-051384

PATIENT
  Age: 53 Year
  Sex: Female

DRUGS (12)
  1. BETASERON [Suspect]
     Indication: PRODUCT USED FOR UNKNOWN INDICATION
     Dosage: 8 MIU, QOD
     Route: 058
     Dates: start: 19990101
  2. MULTI-VITAMIN [Concomitant]
  3. ASPIRIN [Concomitant]
     Dosage: 325 MG, UNK
  4. VALIUM [Concomitant]
     Dosage: 2 MG, UNK
  5. ASCORBIC ACID [Concomitant]
     Dosage: 100 MG, UNK
  6. TIZANIDINE HCL [Concomitant]
     Dosage: 2 MG, UNK
  7. VITAMIN A [Concomitant]
  8. EFFEXOR [Concomitant]
     Dosage: 25 MG, UNK
  9. VITAMIN D [Concomitant]
     Dosage: 1000 U, UNK
  10. BACTRIM [Concomitant]
     Dosage: 400-80 MG
  11. CALCIUM D [Concomitant]
  12. PROVIGIL [Concomitant]
     Dosage: 100 MG, UNK

REACTIONS (1)
  - PYREXIA [None]
